FAERS Safety Report 8857132 (Version 2)
Quarter: 2013Q2

REPORT INFORMATION
  Report Type: Spontaneous
  Country: US (occurrence: None)
  Receive Date: 20120426
  Receipt Date: 20120703
  Transmission Date: 20140414
  Serious: Yes (Other)
  Sender: FDA-Public Use
  Company Number: PHEH2011US08408

PATIENT
  Age: 49 Year
  Sex: Female
  Weight: 68.9 kg

DRUGS (1)
  1. GILENYA [Suspect]
     Indication: MULTIPLE SCLEROSIS
     Route: 048
     Dates: start: 20110627

REACTIONS (7)
  - Photophobia [None]
  - Photosensitivity reaction [None]
  - Conjunctivitis allergic [None]
  - Dry eye [None]
  - Eye pain [None]
  - Dizziness [None]
  - Alopecia [None]
